FAERS Safety Report 16866809 (Version 3)
Quarter: 2019Q4

REPORT INFORMATION
  Report Type: Spontaneous
  Country: US (occurrence: US)
  Receive Date: 20190930
  Receipt Date: 20191206
  Transmission Date: 20200122
  Serious: Yes (Hospitalization, Other)
  Sender: FDA-Public Use
  Company Number: US-BIOGEN-2019BI00790154

PATIENT
  Sex: Female

DRUGS (2)
  1. PLEGRIDY [Suspect]
     Active Substance: PEGINTERFERON BETA-1A
  2. PLEGRIDY [Suspect]
     Active Substance: PEGINTERFERON BETA-1A
     Indication: MULTIPLE SCLEROSIS
     Route: 065
     Dates: start: 20170609, end: 201901

REACTIONS (8)
  - Coronary artery occlusion [Unknown]
  - Oedema peripheral [Unknown]
  - Injection site atrophy [Unknown]
  - Product administered at inappropriate site [Unknown]
  - Myocardial infarction [Recovered/Resolved]
  - Swelling [Unknown]
  - Diabetes mellitus [Unknown]
  - Carotid artery disease [Unknown]
